FAERS Safety Report 5530265-4 (Version None)
Quarter: 2007Q4

REPORT INFORMATION
  Report Type: 
  Country: None (occurrence: None)
  Receive Date: 20071130
  Receipt Date: 20070510
  Transmission Date: 20080405
  Serious: No
  Sender: FDA-Public Use
  Company Number: A0649300A

PATIENT
  Age: 63 Year
  Sex: Male

DRUGS (3)
  1. AUGMENTIN XR [Suspect]
     Dosage: 2TAB TWICE PER DAY
     Route: 048
     Dates: start: 20070409, end: 20070414
  2. LIPITOR [Concomitant]
  3. AVALIDE [Concomitant]

REACTIONS (1)
  - DIARRHOEA [None]
